FAERS Safety Report 7254067-6 (Version None)
Quarter: 2011Q1

REPORT INFORMATION
  Report Type: 
  Country: None (occurrence: None)
  Receive Date: 20110129
  Receipt Date: 20100225
  Transmission Date: 20110831
  Serious: Yes (Hospitalization, Other)
  Sender: FDA-Public Use
  Company Number: US-ABBOTT-10P-163-0628852-00

PATIENT
  Sex: Female
  Weight: 86.26 kg

DRUGS (8)
  1. MOTRIN [Concomitant]
     Indication: PAIN
  2. METHOTREXATE [Concomitant]
     Indication: RHEUMATOID ARTHRITIS
  3. LIPITOR [Concomitant]
     Indication: PRODUCT USED FOR UNKNOWN INDICATION
  4. FLOMAX [Concomitant]
     Indication: PRODUCT USED FOR UNKNOWN INDICATION
  5. HUMIRA [Suspect]
     Indication: RHEUMATOID ARTHRITIS
     Dates: start: 20080101, end: 20091215
  6. HUMIRA [Suspect]
     Dates: start: 20100222
  7. RAMIPRIL [Concomitant]
     Indication: HYPERTENSION
  8. HYDRALAZINE HYDROCHLORIDE W/ HYDROCHLOROTHIAZIDE 25/25 [Concomitant]
     Indication: HYPERTENSION

REACTIONS (5)
  - OEDEMA PERIPHERAL [None]
  - BACK PAIN [None]
  - SURGERY [None]
  - ERYTHEMA [None]
  - SKIN DISCOLOURATION [None]
